FAERS Safety Report 16337110 (Version 1)
Quarter: 2019Q2

REPORT INFORMATION
  Report Type: Spontaneous
  Country: US (occurrence: US)
  Receive Date: 20190415
  Receipt Date: 20190415
  Transmission Date: 20190711
  Serious: Yes (Hospitalization)
  Sender: FDA-Public Use
  Company Number: None

PATIENT
  Age: 63 Year
  Sex: Female

DRUGS (4)
  1. SPRYCEL [Suspect]
     Active Substance: DASATINIB
     Indication: CHRONIC MYELOID LEUKAEMIA
  2. TEMAZEPAM. [Concomitant]
     Active Substance: TEMAZEPAM
  3. MOMETASONE [Concomitant]
     Active Substance: MOMETASONE
  4. IMATINIB 400MG [Suspect]
     Active Substance: IMATINIB
     Indication: CHRONIC MYELOID LEUKAEMIA
     Route: 048
     Dates: start: 20190213

REACTIONS (4)
  - Peripheral vascular disorder [None]
  - Fluid retention [None]
  - Peripheral swelling [None]
  - Therapy cessation [None]

NARRATIVE: CASE EVENT DATE: 20190301
